FAERS Safety Report 4996037-4 (Version None)
Quarter: 2006Q2

REPORT INFORMATION
  Report Type: 
  Country: None (occurrence: None)
  Receive Date: 20060508
  Receipt Date: 20060428
  Transmission Date: 20061013
  Serious: Yes (Hospitalization)
  Sender: FDA-Public Use
  Company Number: US-MERCK-0605USA00059

PATIENT
  Age: 72 Year
  Sex: Female
  Weight: 52 kg

DRUGS (14)
  1. VIOXX [Suspect]
     Indication: ARTHRITIS
     Route: 048
     Dates: start: 19991001, end: 20030601
  2. ACCUPRIL [Concomitant]
     Route: 065
  3. LASIX [Concomitant]
     Route: 065
  4. PEPCID [Concomitant]
     Route: 065
  5. K-DUR 10 [Concomitant]
     Route: 065
  6. ATROVENT [Concomitant]
     Route: 065
  7. ALBUTEROL [Concomitant]
     Route: 065
  8. PREMPRO [Concomitant]
     Route: 065
  9. SYNTHROID [Concomitant]
     Route: 065
  10. SEREVENT [Concomitant]
     Route: 065
  11. CARDURA [Concomitant]
     Route: 065
  12. DIABETA [Concomitant]
     Route: 065
  13. PLAVIX [Concomitant]
     Route: 065
  14. SINGULAIR [Concomitant]
     Route: 065

REACTIONS (2)
  - CEREBROVASCULAR ACCIDENT [None]
  - DEPRESSION [None]
